FAERS Safety Report 15297942 (Version 1)
Quarter: 2020Q3

REPORT INFORMATION
  Report Type: Report from Study
  Country: JP (occurrence: JP)
  Receive Date: 20180820
  Receipt Date: 20180820
  Transmission Date: 20201104
  Serious: Yes (Hospitalization, Other)
  Sender: FDA-Public Use
  Company Number: JP-JNJFOC-20170408697

PATIENT
  Age: 48 Year
  Sex: Female
  Weight: 62 kg

DRUGS (19)
  1. UREPEARL [Concomitant]
     Active Substance: UREA
     Indication: ECZEMA
     Dosage: AS NECESSARY
     Route: 061
     Dates: start: 20170329
  2. GLYCERIN. [Concomitant]
     Active Substance: GLYCERIN
     Indication: ENDOSCOPY
     Dosage: 0.1 FINGER TIP  AS NECESSARY
     Route: 054
     Dates: start: 20170329, end: 20170329
  3. XYLOCAINE [Concomitant]
     Active Substance: LIDOCAINE HYDROCHLORIDE
     Indication: ENDOSCOPY
     Dosage: 0.1 FINGER TIP  AS NECESSARY
     Route: 054
     Dates: start: 20170329, end: 20170329
  4. CALONAL [Concomitant]
     Active Substance: ACETAMINOPHEN
     Indication: COLITIS ULCERATIVE
     Dosage: AS NECESSARY
     Route: 048
  5. CINAL (ASCORBIC ACID\CALCIUM PANTOTHENATE) [Concomitant]
     Active Substance: ASCORBIC ACID\CALCIUM PANTOTHENATE
     Indication: RASH
     Route: 048
  6. CINAL (ASCORBIC ACID\CALCIUM PANTOTHENATE) [Concomitant]
     Active Substance: ASCORBIC ACID\CALCIUM PANTOTHENATE
     Indication: RASH
     Route: 048
  7. USTEKINUMAB [Suspect]
     Active Substance: USTEKINUMAB
     Route: 058
  8. PREDONINE [Concomitant]
     Active Substance: PREDNISOLONE
     Indication: COLITIS ULCERATIVE
     Route: 048
     Dates: start: 20170331, end: 20170426
  9. PREDONINE [Concomitant]
     Active Substance: PREDNISOLONE
     Indication: COLITIS ULCERATIVE
     Route: 048
     Dates: start: 20170427
  10. ANTEBATE [Concomitant]
     Active Substance: BETAMETHASONE DIPROPIONATE
     Indication: ECZEMA
     Dosage: AS NECESSARY
     Route: 061
     Dates: start: 20170329
  11. USTEKINUMAB [Suspect]
     Active Substance: USTEKINUMAB
     Indication: COLITIS ULCERATIVE
     Route: 058
     Dates: start: 20170201
  12. ASACOL [Concomitant]
     Active Substance: MESALAMINE
     Indication: COLITIS ULCERATIVE
     Dosage: AS NECESSARY
     Route: 048
     Dates: end: 20170516
  13. PREDONINE [Concomitant]
     Active Substance: PREDNISOLONE
     Indication: COLITIS ULCERATIVE
     Route: 048
     Dates: start: 20161221, end: 20170330
  14. HIRUDOID [Concomitant]
     Active Substance: GLYCOSAMINOGLYCANS
     Indication: RASH
     Dosage: AS NECESSARY
     Route: 061
  15. VOALLA [Concomitant]
     Indication: ECZEMA
     Dosage: 0.1 FINGER TIP  AS NECESSARY
     Route: 061
     Dates: start: 20170329
  16. SALICYLIC ACID. [Concomitant]
     Active Substance: SALICYLIC ACID
     Indication: ECZEMA
     Dosage: AS NECESSARY
     Route: 060
     Dates: start: 20170329
  17. INDIGOCARMIN [Concomitant]
     Indication: ENDOSCOPY
     Dosage: 0.1 FINGER TIP  AS NECESSARY
     Route: 060
     Dates: start: 20170329, end: 20170329
  18. XYLOCAINE [Concomitant]
     Active Substance: LIDOCAINE HYDROCHLORIDE
     Indication: ENDOSCOPY
     Route: 054
     Dates: start: 20170517, end: 20170517
  19. SESDEN [Concomitant]
     Active Substance: TIMEPIDIUM BROMIDE
     Indication: ENDOSCOPY
     Dosage: 0.1 FINGER TIP  AS NECESSARY
     Route: 030
     Dates: start: 20170329, end: 20170329

REACTIONS (2)
  - Dermatitis [Recovered/Resolved]
  - Colon cancer [Recovered/Resolved]

NARRATIVE: CASE EVENT DATE: 20170331
